FAERS Safety Report 4660974-0 (Version None)
Quarter: 2005Q2

REPORT INFORMATION
  Report Type: 
  Country: None (occurrence: None)
  Receive Date: 20050511
  Receipt Date: 20050427
  Transmission Date: 20051028
  Serious: Yes (Hospitalization)
  Sender: FDA-Public Use
  Company Number: 8010359

PATIENT
  Age: 7 Year
  Sex: Male

DRUGS (4)
  1. KEPPRA [Suspect]
     Indication: AFFECTIVE DISORDER
     Dosage: 250 MG/ D PO
     Route: 048
     Dates: start: 20050411, end: 20050417
  2. ADDERALL 10 [Concomitant]
  3. STRATTERA [Concomitant]
  4. FOCALIN [Concomitant]

REACTIONS (3)
  - ERYTHEMA [None]
  - PYREXIA [None]
  - RASH GENERALISED [None]
